FAERS Safety Report 8402732-7 (Version None)
Quarter: 2012Q2

REPORT INFORMATION
  Report Type: 
  Country: None (occurrence: None)
  Receive Date: 20120601
  Receipt Date: 20120518
  Transmission Date: 20120825
  Serious: Yes (Other)
  Sender: FDA-Public Use
  Company Number: US-ENDO PHARMACEUTICALS INC.-OPCR20121045

PATIENT
  Sex: Male

DRUGS (4)
  1. OPANA ER [Suspect]
     Indication: PAIN
     Dosage: 40 MG
     Route: 048
     Dates: start: 20120401, end: 20120516
  2. OPANA ER [Concomitant]
     Route: 048
     Dates: start: 20120101, end: 20120101
  3. OPANA ER [Suspect]
     Dosage: 40 MG
     Route: 048
     Dates: start: 20120101, end: 20120516
  4. OPANA ER [Concomitant]
     Indication: PAIN
     Route: 048
     Dates: end: 20120401

REACTIONS (5)
  - VERTIGO [None]
  - VOMITING [None]
  - HEADACHE [None]
  - DRUG DISPENSING ERROR [None]
  - NAUSEA [None]
